FAERS Safety Report 16388524 (Version 1)
Quarter: 2019Q2

REPORT INFORMATION
  Report Type: Spontaneous
  Country: US (occurrence: US)
  Receive Date: 20190604
  Receipt Date: 20190604
  Transmission Date: 20190711
  Serious: No
  Sender: FDA-Public Use
  Company Number: US-BAUSCH-BL-2018-008250

PATIENT
  Age: 81 Year
  Sex: Female
  Weight: 55.84 kg

DRUGS (7)
  1. KEFLEX [Concomitant]
     Active Substance: CEPHALEXIN
     Indication: CYSTITIS
     Dosage: STARTED AND DISCONTINUED ABOUT 3 YEARS AGO USED FOR A DURATION OF 10 DAYS.
     Route: 048
  2. AMLODIPINE [Concomitant]
     Active Substance: AMLODIPINE BESYLATE
     Indication: HYPERTENSION
     Dosage: START DATE: FOR ABOUT 5 YEARS
     Route: 048
  3. WARFARIN [Concomitant]
     Active Substance: WARFARIN
     Indication: THROMBOSIS
     Dosage: 1 MG PLUS 5 MG EQUAL TO 6 MG FOR TWO DAYS AND 5 MG FOR 5 DAYS, STARTED ABOUT 12 YEARS BACK
     Route: 048
  4. CENTRUM SILVER [Concomitant]
     Active Substance: MINERALS\VITAMINS
     Indication: SUPPORTIVE CARE
     Dosage: STARTED ABOUT 20 YEARS BACK
     Route: 048
  5. ELIDEL [Suspect]
     Active Substance: PIMECROLIMUS
     Indication: RASH
     Route: 061
     Dates: start: 20180305
  6. CALCIUM [Concomitant]
     Active Substance: CALCIUM
     Indication: SUPPORTIVE CARE
     Dosage: 1200 UNITS, STARTED ABOUT 20 YEARS BACK
     Route: 048
  7. VITAMIN D [Concomitant]
     Active Substance: VITAMIN D NOS
     Indication: SUPPORTIVE CARE
     Dosage: 600 UNITS, CAPLET, STARTED ABOUT 20 YEARS BACK
     Route: 048

REACTIONS (2)
  - Off label use [Not Recovered/Not Resolved]
  - Drug ineffective for unapproved indication [Not Recovered/Not Resolved]

NARRATIVE: CASE EVENT DATE: 201803
